FAERS Safety Report 17500562 (Version 1)
Quarter: 2020Q1

REPORT INFORMATION
  Report Type: Spontaneous
  Country: US (occurrence: US)
  Receive Date: 20200224
  Receipt Date: 20200224
  Transmission Date: 20200409
  Serious: No
  Sender: FDA-Public Use
  Company Number: None

PATIENT
  Age: 75 Year
  Sex: Female

DRUGS (1)
  1. IBRANCE [Suspect]
     Active Substance: PALBOCICLIB
     Route: 048
     Dates: start: 20190911

REACTIONS (4)
  - Sinus operation [None]
  - Post procedural complication [None]
  - Nasal dryness [None]
  - Nasal discomfort [None]

NARRATIVE: CASE EVENT DATE: 20200224
